FAERS Safety Report 10911822 (Version 1)
Quarter: 2015Q1

REPORT INFORMATION
  Report Type: Spontaneous
  Country: GB (occurrence: GB)
  Receive Date: 20150313
  Receipt Date: 20150313
  Transmission Date: 20150721
  Serious: Yes (Other)
  Sender: FDA-Public Use
  Company Number: GB-ACCORD-029236

PATIENT
  Age: 40 Year
  Sex: Male
  Weight: 116 kg

DRUGS (14)
  1. PARACETAMOL [Concomitant]
     Active Substance: ACETAMINOPHEN
     Indication: PAIN
     Dosage: TAKE 1 OR 2
     Dates: start: 20141208
  2. CHLORHEXIDINE [Concomitant]
     Active Substance: CHLORHEXIDINE
     Dosage: USE AS DIRECTED
     Dates: start: 20140924
  3. LANSOPRAZOLE. [Concomitant]
     Active Substance: LANSOPRAZOLE
     Dates: start: 20141203, end: 20150129
  4. LYMECYCLINE [Concomitant]
     Active Substance: LYMECYCLINE
     Dates: start: 20140305, end: 20141203
  5. COCODAMOL [Concomitant]
     Active Substance: ACETAMINOPHEN\CODEINE PHOSPHATE
     Dosage: TAKE 1 OR 2
     Dates: start: 20141224, end: 20150121
  6. BETAMETHASONE [Concomitant]
     Active Substance: BETAMETHASONE
     Dates: start: 20141203, end: 20141210
  7. METHOCARBAMOL. [Concomitant]
     Active Substance: METHOCARBAMOL
     Indication: SCIATICA
     Dates: start: 20141208
  8. NEFOPAM [Concomitant]
     Active Substance: NEFOPAM
     Dates: start: 20141203, end: 20141208
  9. AVEENO [Concomitant]
     Active Substance: DIMETHICONE\HOMOSALATE\OCTINOXATE\OCTISALATE\TITANIUM DIOXIDE
     Indication: PSORIASIS
     Dosage: MASSGE INTO PSORIATIC PLAQUES WHEN WASHING
     Dates: start: 20140416
  10. METHOTREXATE [Suspect]
     Active Substance: METHOTREXATE
     Indication: PRODUCT USED FOR UNKNOWN INDICATION
     Dosage: TO BE TAKEN FOR TWO WEEKS
     Dates: start: 20150107
  11. NAPROXEN. [Concomitant]
     Active Substance: NAPROXEN
     Dosage: WITH FOOD AND PROTON PUMP INHIBITOR.
     Dates: start: 20141203, end: 20150121
  12. GLYCINE MAX [Concomitant]
     Indication: PSORIASIS
     Dosage: USE FOR BATH TREATMENT OF PSORIASIS
     Dates: start: 20140910
  13. CALCIPOTRIOL [Concomitant]
     Active Substance: CALCIPOTRIENE
     Dosage: APPLY ONCE DAILY TO AFFECTED AREAS-NOT TO FACE
     Dates: start: 20131105
  14. COAL TAR. [Concomitant]
     Active Substance: COAL TAR
     Dosage: USE AS NEEDED
     Dates: start: 20140924

REACTIONS (1)
  - Serum procollagen type III N-terminal propeptide increased [Unknown]

NARRATIVE: CASE EVENT DATE: 20150227
